FAERS Safety Report 9136056 (Version 1)
Quarter: 2013Q1

REPORT INFORMATION
  Report Type: Spontaneous
  Country: DK (occurrence: None)
  Receive Date: 20130219
  Receipt Date: 20130219
  Transmission Date: 20140127
  Serious: Yes (Death)
  Sender: FDA-Public Use
  Company Number: FK201300414

PATIENT
  Age: 64 Year
  Sex: Female

DRUGS (10)
  1. PACLITAXEL [Suspect]
  2. LETROZOLE [Suspect]
  3. VINORELBINE [Suspect]
  4. ERIBULIN [Suspect]
  5. XELODA [Suspect]
  6. HERCEPTIN [Suspect]
  7. LAPATINIB [Suspect]
  8. EPIRUBICIN (EPIRUBICIN) (EPIRUBICIN) [Concomitant]
  9. CYCLOPHOSPHAMIDE (CYCLOPHOSPHAMIDE) (CYCLOSPHAMIDE) [Concomitant]
  10. TAXOTERE (DOCETAXEL) (DECETAXEL) [Concomitant]

REACTIONS (6)
  - Neoplasm malignant [None]
  - Malignant neoplasm progression [None]
  - Sensory disturbance [None]
  - Tenderness [None]
  - Fracture [None]
  - Superior vena cava syndrome [None]
